FAERS Safety Report 23056467 (Version 2)
Quarter: 2023Q4

REPORT INFORMATION
  Report Type: Spontaneous
  Country: CO (occurrence: CO)
  Receive Date: 20231011
  Receipt Date: 20231016
  Transmission Date: 20240110
  Serious: Yes (Hospitalization)
  Sender: FDA-Public Use
  Company Number: CO-BIOMARINAP-CO-2023-153158

PATIENT

DRUGS (1)
  1. VOXZOGO [Suspect]
     Active Substance: VOSORITIDE
     Indication: Osteochondrodysplasia
     Dosage: 0.56 MILLIGRAM
     Route: 058
     Dates: start: 20230829

REACTIONS (4)
  - Tracheitis [Unknown]
  - Pneumonia [Unknown]
  - Granuloma [Unknown]
  - Pyrexia [Unknown]

NARRATIVE: CASE EVENT DATE: 20230929
